FAERS Safety Report 13619555 (Version 1)
Quarter: 2017Q2

REPORT INFORMATION
  Report Type: Spontaneous
  Country: US (occurrence: US)
  Receive Date: 20170606
  Receipt Date: 20170606
  Transmission Date: 20170830
  Serious: No
  Sender: FDA-Public Use
  Company Number: US-BAYER-2017-107449

PATIENT
  Sex: Male

DRUGS (2)
  1. STAXYN [Suspect]
     Active Substance: VARDENAFIL HYDROCHLORIDE TRIHYDRATE
     Dosage: 10 MG, UNK
     Route: 048
     Dates: start: 20170601
  2. STAXYN [Suspect]
     Active Substance: VARDENAFIL HYDROCHLORIDE TRIHYDRATE
     Dosage: 10 MG, UNK
     Route: 048
     Dates: start: 20170530

REACTIONS (2)
  - Drug ineffective [None]
  - Drug administration error [None]

NARRATIVE: CASE EVENT DATE: 20170530
